FAERS Safety Report 24119151 (Version 1)
Quarter: 2024Q3

REPORT INFORMATION
  Report Type: Spontaneous
  Country: US (occurrence: US)
  Receive Date: 20240722
  Receipt Date: 20240722
  Transmission Date: 20241016
  Serious: Yes (Other)
  Sender: BAYER
  Company Number: US-BAYER-2024A101816

PATIENT
  Age: 71 Year
  Sex: Male

DRUGS (1)
  1. KOVALTRY [Suspect]
     Active Substance: ANTIHEMOPHILIC FACTOR, HUMAN RECOMBINANT
     Dosage: 4000 UN PRIOR TO PROCEDURE/2000 UN 24 HRS LATER
     Dates: start: 20240712

REACTIONS (1)
  - Dental operation [None]

NARRATIVE: CASE EVENT DATE: 20240712
